FAERS Safety Report 14555098 (Version 2)
Quarter: 2018Q2

REPORT INFORMATION
  Report Type: Spontaneous
  Country: SI (occurrence: SI)
  Receive Date: 20180220
  Receipt Date: 20180528
  Transmission Date: 20180711
  Serious: Yes (Hospitalization, Other)
  Sender: FDA-Public Use
  Company Number: SI-ELI_LILLY_AND_COMPANY-SI201802006160

PATIENT
  Age: 67 Year
  Sex: Female

DRUGS (1)
  1. TRULICITY [Suspect]
     Active Substance: DULAGLUTIDE
     Indication: PRODUCT USED FOR UNKNOWN INDICATION
     Dosage: UNK UNK, UNKNOWN
     Route: 065
     Dates: start: 20161013

REACTIONS (4)
  - Pancreatic carcinoma metastatic [Unknown]
  - Weight decreased [Unknown]
  - Impaired gastric emptying [Unknown]
  - Perihepatic abscess [Unknown]

NARRATIVE: CASE EVENT DATE: 20161215
